FAERS Safety Report 10128891 (Version 2)
Quarter: 2015Q1

REPORT INFORMATION
  Report Type: Other
  Country: None (occurrence: US)
  Receive Date: 20140428
  Receipt Date: 20150213
  Transmission Date: 20150720
  Serious: Yes (Hospitalization, Other)
  Sender: FDA-Public Use
  Company Number: US-GSKPPD-2014GSK033727

PATIENT
  Age: 59 Year
  Sex: Male
  Weight: 101.7 kg

DRUGS (5)
  1. AVANDIA [Suspect]
     Active Substance: ROSIGLITAZONE MALEATE
     Indication: DIABETES MELLITUS
     Dosage: AVANDIA WAS NOT LISTED AMONG THE PATIENTS RECORDS REVIEWED.
     Route: 048
  2. NITROGLYCERIN. [Concomitant]
     Active Substance: NITROGLYCERIN
     Dosage: 1 MG PER 150 MG
     Route: 060
  3. LASIX [Concomitant]
     Active Substance: FUROSEMIDE
  4. COZAAR [Concomitant]
     Active Substance: LOSARTAN POTASSIUM
  5. TOPROL XL [Concomitant]
     Active Substance: METOPROLOL SUCCINATE

REACTIONS (2)
  - Cardiac failure congestive [Unknown]
  - Myocardial infarction [Unknown]

NARRATIVE: CASE EVENT DATE: 20030329
